FAERS Safety Report 9792232 (Version 1)
Quarter: 2014Q1

REPORT INFORMATION
  Report Type: Spontaneous
  Country: FR (occurrence: FR)
  Receive Date: 20140102
  Receipt Date: 20140102
  Transmission Date: 20141002
  Serious: Yes (Hospitalization)
  Sender: FDA-Public Use
  Company Number: FR-SA-2013SA134695

PATIENT
  Age: 84 Year
  Sex: Male
  Weight: 52 kg

DRUGS (11)
  1. RIFADINE [Suspect]
     Indication: MENINGITIS TUBERCULOUS
     Dosage: 480 THEN 600 BID
     Route: 042
     Dates: start: 20131005, end: 20131104
  2. PIRILENE [Suspect]
     Indication: MENINGITIS TUBERCULOUS
     Dosage: 1200 THEN 1500 QD
     Route: 048
     Dates: start: 20131005, end: 20131030
  3. AUGMENTIN [Suspect]
     Indication: PRODUCT USED FOR UNKNOWN INDICATION
     Dosage: 1 G AND THEN 2 G TID
     Route: 042
     Dates: start: 20131017, end: 20131031
  4. RIMIFON [Suspect]
     Dosage: 200 AND THEN 150 MG QD
     Route: 042
     Dates: start: 20131005, end: 20131106
  5. COLCHICINE [Concomitant]
  6. DISULONE [Concomitant]
  7. PREDNISONE [Concomitant]
  8. CLOPIDOGREL [Concomitant]
  9. EZETIMIBE [Concomitant]
  10. MECIR [Concomitant]
     Dosage: DOSE:1 UNIT(S)
  11. ETHAMBUTOL [Concomitant]
     Indication: MENINGITIS TUBERCULOUS

REACTIONS (3)
  - Cholestatic liver injury [Recovering/Resolving]
  - Jaundice [Recovering/Resolving]
  - Cell death [Recovering/Resolving]
